FAERS Safety Report 7905985-4 (Version None)
Quarter: 2011Q4

REPORT INFORMATION
  Report Type: 
  Country: None (occurrence: None)
  Receive Date: 20111109
  Receipt Date: 20111109
  Transmission Date: 20120403
  Serious: Yes (Life-Threatening, Hospitalization, Disabling)
  Sender: FDA-Public Use
  Company Number: None

PATIENT
  Age: 50 Year
  Sex: Female
  Weight: 92.9874 kg

DRUGS (1)
  1. MULTIVITAMIN [Suspect]
     Indication: VITAMIN SUPPLEMENTATION
     Dosage: 2 PER DAY
     Dates: start: 19950101, end: 20110101

REACTIONS (8)
  - CONSTIPATION [None]
  - PAIN [None]
  - MUSCULAR WEAKNESS [None]
  - WEIGHT INCREASED [None]
  - MUSCLE SPASMS [None]
  - FATIGUE [None]
  - PRURITUS [None]
  - MEMORY IMPAIRMENT [None]
